FAERS Safety Report 10778962 (Version 2)
Quarter: 2015Q1

REPORT INFORMATION
  Report Type: Spontaneous
  Country: US (occurrence: US)
  Receive Date: 20150210
  Receipt Date: 20150320
  Transmission Date: 20150721
  Serious: No
  Sender: FDA-Public Use
  Company Number: US-AMGEN-USASP2015011714

PATIENT
  Age: 29 Year
  Sex: Male

DRUGS (1)
  1. ENBREL [Suspect]
     Active Substance: ETANERCEPT
     Indication: PSORIATIC ARTHROPATHY
     Dosage: 50 MG, QWK
     Route: 065
     Dates: start: 201410

REACTIONS (6)
  - Rhinorrhoea [Recovered/Resolved]
  - Vomiting [Recovered/Resolved]
  - Nasopharyngitis [Recovered/Resolved]
  - Blood urine present [Not Recovered/Not Resolved]
  - Cough [Recovered/Resolved]
  - Abdominal pain [Recovered/Resolved]

NARRATIVE: CASE EVENT DATE: 2014
